FAERS Safety Report 18858430 (Version 1)
Quarter: 2021Q1

REPORT INFORMATION
  Report Type: Spontaneous
  Country: US (occurrence: US)
  Receive Date: 20210205
  Receipt Date: 20210205
  Transmission Date: 20210420
  Serious: Yes (Disabling, Other)
  Sender: FDA-Public Use
  Company Number: None

PATIENT
  Age: 41 Year
  Sex: Female
  Weight: 47.63 kg

DRUGS (1)
  1. PARAGARD T 380A [Suspect]
     Active Substance: COPPER
     Route: 067
     Dates: start: 20200811, end: 20201216

REACTIONS (4)
  - Anxiety [None]
  - Intra-uterine contraceptive device removal [None]
  - Vertigo [None]
  - Urinary tract infection [None]

NARRATIVE: CASE EVENT DATE: 20200901
